FAERS Safety Report 18218046 (Version 1)
Quarter: 2020Q3

REPORT INFORMATION
  Report Type: Spontaneous
  Country: CN (occurrence: CN)
  Receive Date: 20200901
  Receipt Date: 20200901
  Transmission Date: 20201103
  Serious: Yes (Life-Threatening, Other)
  Sender: FDA-Public Use
  Company Number: CN-009507513-2008CHN014200

PATIENT
  Age: 80 Year
  Sex: Female
  Weight: 58.4 kg

DRUGS (3)
  1. TIENAM [Suspect]
     Active Substance: CILASTATIN SODIUM\IMIPENEM
     Indication: ANTI-INFECTIVE THERAPY
     Dosage: 2G
     Route: 041
     Dates: start: 20200813, end: 20200813
  2. IRBESARTAN. [Concomitant]
     Active Substance: IRBESARTAN
     Indication: HYPERTENSION
     Dosage: 150MG
     Route: 048
     Dates: start: 20200808, end: 20200825
  3. METOPROLOL TARTRATE. [Concomitant]
     Active Substance: METOPROLOL TARTRATE
     Indication: HYPERTENSION
     Dosage: 12.5MG
     Route: 048
     Dates: start: 20200808, end: 20200825

REACTIONS (1)
  - Epilepsy [Recovered/Resolved]

NARRATIVE: CASE EVENT DATE: 20200814
